FAERS Safety Report 8606496-3 (Version None)
Quarter: 2012Q3

REPORT INFORMATION
  Report Type: 
  Country: None (occurrence: None)
  Receive Date: 20120820
  Receipt Date: 20120815
  Transmission Date: 20120928
  Serious: Yes (Hospitalization)
  Sender: FDA-Public Use
  Company Number: GXKR2012DE002618

PATIENT

DRUGS (4)
  1. DIPYRONE TAB [Concomitant]
     Indication: ANALGESIC THERAPY
     Dosage: 2 X 500 MG
     Route: 048
  2. ASPIRIN [Concomitant]
     Dosage: 1 X 100 MG
     Route: 048
  3. CIPROFLOXACIN [Suspect]
     Indication: HAEMATOMA INFECTION
     Dosage: 3 X 250 MG
     Route: 042
  4. ACTRAPID HUMAN [Concomitant]
     Indication: DIABETES MELLITUS
     Dosage: 2 X 2 IE
     Route: 058

REACTIONS (1)
  - PEMPHIGUS [None]
